FAERS Safety Report 8200267-8 (Version None)
Quarter: 2012Q1

REPORT INFORMATION
  Report Type: 
  Country: None (occurrence: None)
  Receive Date: 20120312
  Receipt Date: 20120308
  Transmission Date: 20120608
  Serious: Yes (Other)
  Sender: FDA-Public Use
  Company Number: US-PFIZER INC-2012062571

PATIENT
  Sex: Male
  Weight: 87.982 kg

DRUGS (7)
  1. JANUVIA [Suspect]
     Indication: DIABETES MELLITUS
     Dosage: 50 MG, UNK
  2. LIPITOR [Suspect]
     Dosage: 20 MG, 1X/DAY
     Route: 048
  3. LOVAZA [Concomitant]
     Indication: BLOOD TRIGLYCERIDES INCREASED
     Dosage: UNK
  4. DILTIAZEM [Concomitant]
     Dosage: 40 MG, 1X/DAY
  5. LIPITOR [Suspect]
     Indication: BLOOD CHOLESTEROL INCREASED
     Dosage: 10 MG, 1X/DAY
     Route: 048
  6. HYDROCHLOROTHIAZIDE [Concomitant]
     Dosage: 12.5 MG, UNK
  7. ALISKIREN/VALSARTAN [Concomitant]
     Dosage: 300 MG, UNK

REACTIONS (3)
  - ANXIETY [None]
  - DIABETES MELLITUS [None]
  - DEPRESSION [None]
